FAERS Safety Report 4744616-1 (Version None)
Quarter: 2005Q3

REPORT INFORMATION
  Report Type: 
  Country: None (occurrence: None)
  Receive Date: 20050809
  Receipt Date: 20041115
  Transmission Date: 20060218
  Serious: Yes (Hospitalization)
  Sender: FDA-Public Use
  Company Number: 04R-163-0281293-00

PATIENT
  Sex: Male

DRUGS (2)
  1. SURVANTA [Suspect]
     Indication: RESPIRATORY DISTRESS
     Dates: start: 20030715
  2. FENTANYL CITRATE (FENTANYL CITRATE) (FENTANYL CITRATE) [Concomitant]

REACTIONS (2)
  - PNEUMOTHORAX [None]
  - PULMONARY HAEMORRHAGE [None]
